FAERS Safety Report 20844215 (Version 1)
Quarter: 2022Q2

REPORT INFORMATION
  Report Type: Spontaneous
  Country: US (occurrence: US)
  Receive Date: 20220518
  Receipt Date: 20220518
  Transmission Date: 20220721
  Serious: No
  Sender: FDA-Public Use
  Company Number: US-PFIZER INC-202200694873

PATIENT
  Age: 44 Year
  Sex: Female
  Weight: 50.8 kg

DRUGS (1)
  1. PAXLOVID [Suspect]
     Active Substance: NIRMATRELVIR\RITONAVIR
     Indication: COVID-19 treatment
     Dosage: 2 DF, 2X/DAY (4 PILLS IN ONE AND, SHE STATES THAT SHE TAKES 2 PILLS AT NIGHT AND 2 IN THE MORNING)
     Dates: start: 20220509

REACTIONS (2)
  - Lip pain [Unknown]
  - Musculoskeletal chest pain [Unknown]

NARRATIVE: CASE EVENT DATE: 20220509
